FAERS Safety Report 18818545 (Version 1)
Quarter: 2021Q1

REPORT INFORMATION
  Report Type: Spontaneous
  Country: FR (occurrence: FR)
  Receive Date: 20210201
  Receipt Date: 20210201
  Transmission Date: 20210419
  Serious: Yes (Hospitalization)
  Sender: FDA-Public Use
  Company Number: FR-PFIZER INC-2021065925

PATIENT
  Age: 64 Year
  Sex: Female
  Weight: 62 kg

DRUGS (2)
  1. ARACYTINE [Suspect]
     Active Substance: CYTARABINE
     Indication: ACUTE MYELOID LEUKAEMIA
     Dosage: 160 MG, 1X/DAY
     Route: 058
     Dates: start: 20201112, end: 20201116
  2. IDARUBICIN HCL [Suspect]
     Active Substance: IDARUBICIN HYDROCHLORIDE
     Indication: ACUTE MYELOID LEUKAEMIA
     Dosage: 13 MG, SINGLE
     Route: 042
     Dates: start: 20201112, end: 20201112

REACTIONS (1)
  - Chondrocalcinosis [Recovered/Resolved]

NARRATIVE: CASE EVENT DATE: 20201121
